FAERS Safety Report 7291684-1 (Version None)
Quarter: 2011Q1

REPORT INFORMATION
  Report Type: 
  Country: None (occurrence: None)
  Receive Date: 20110214
  Receipt Date: 20110201
  Transmission Date: 20110831
  Serious: No
  Sender: FDA-Public Use
  Company Number: US-ELI_LILLY_AND_COMPANY-US201008005851

PATIENT
  Sex: Male
  Weight: 73.469 kg

DRUGS (12)
  1. PROSCAR [Concomitant]
     Dosage: 5 MG, DAILY (1/D)
  2. EFFIENT [Suspect]
     Dosage: 5 MG, DAILY (1/D)
     Route: 048
     Dates: start: 20100825
  3. STARLIX [Concomitant]
     Dosage: 60 MG, 3/D
  4. INSPRA [Concomitant]
     Dosage: 25 MG, DAILY (1/D)
  5. FLOMAX [Concomitant]
     Dosage: 0.4 MG, DAILY (1/D)
  6. NITROGLYCERIN [Concomitant]
     Dosage: 0.4 MG, AS NEEDED
  7. REMERON [Concomitant]
     Dosage: 15 MG, DAILY (1/D)
  8. EFFIENT [Suspect]
     Indication: STENT PLACEMENT
     Dosage: 10 MG, DAILY (1/D)
     Dates: start: 20100601
  9. ZETIA [Concomitant]
     Dosage: 10 MG, DAILY (1/D)
  10. LEVOXYL [Concomitant]
     Dosage: 12.5 MG, DAILY (1/D)
  11. XANAX [Concomitant]
     Dosage: 0.5 MG, 3/D
  12. MULTAQ [Concomitant]
     Dosage: 400 MG, 2/D
     Dates: end: 20100909

REACTIONS (4)
  - DRUG DOSE OMISSION [None]
  - OFF LABEL USE [None]
  - ANGINA PECTORIS [None]
  - PLATELET AGGREGATION INHIBITION [None]
